FAERS Safety Report 17079864 (Version 1)
Quarter: 2019Q4

REPORT INFORMATION
  Report Type: Report from Study
  Country: US (occurrence: US)
  Receive Date: 20191127
  Receipt Date: 20191127
  Transmission Date: 20200122
  Serious: Yes (Other)
  Sender: FDA-Public Use
  Company Number: US-BIOGEN-2019BI00810194

PATIENT
  Sex: Male

DRUGS (3)
  1. TYSABRI [Suspect]
     Active Substance: NATALIZUMAB
     Indication: MULTIPLE SCLEROSIS
     Route: 065
     Dates: start: 20110324, end: 20120124
  2. TYSABRI [Suspect]
     Active Substance: NATALIZUMAB
     Route: 065
     Dates: start: 20120309
  3. TYSABRI [Suspect]
     Active Substance: NATALIZUMAB
     Route: 065
     Dates: end: 20191009

REACTIONS (2)
  - Sepsis [Unknown]
  - Pneumonia [Unknown]
